FAERS Safety Report 21898669 (Version 1)
Quarter: 2023Q1

REPORT INFORMATION
  Report Type: Spontaneous
  Country: CN (occurrence: CN)
  Receive Date: 20230123
  Receipt Date: 20230123
  Transmission Date: 20230418
  Serious: Yes (Hospitalization)
  Sender: FDA-Public Use
  Company Number: CN-002147023-NVSC2023CN013928

PATIENT
  Age: 28 Year
  Sex: Male

DRUGS (4)
  1. CYCLOSPORINE [Suspect]
     Active Substance: CYCLOSPORINE
     Indication: Aplastic anaemia
     Dosage: UNK
     Route: 065
  2. STANOZOLOL [Suspect]
     Active Substance: STANOZOLOL
     Indication: Aplastic anaemia
     Dosage: UNK
     Route: 065
  3. TESTOSTERONE UNDECANOATE [Suspect]
     Active Substance: TESTOSTERONE UNDECANOATE
     Indication: Aplastic anaemia
     Dosage: UNK
     Route: 065
  4. METHYLPREDNISOLONE [Suspect]
     Active Substance: METHYLPREDNISOLONE
     Indication: Aplastic anaemia
     Dosage: UNK
     Route: 065

REACTIONS (2)
  - Hepatocellular carcinoma [Unknown]
  - Product use in unapproved indication [Unknown]
